FAERS Safety Report 8772781 (Version 3)
Quarter: 2012Q4

REPORT INFORMATION
  Report Type: 
  Country: JP (occurrence: JP)
  Receive Date: 20120907
  Receipt Date: 20121206
  Transmission Date: 20130627
  Serious: No
  Sender: FDA-Public Use
  Company Number: JP-009507513-2012SP027870

PATIENT

DRUGS (21)
  1. PEGINTRON [Suspect]
     Indication: CHRONIC HEPATITIS C
     Dosage: 1.5 ?g/kg, QW
     Route: 058
     Dates: start: 20120208, end: 20120215
  2. PEGINTRON [Suspect]
     Dosage: 0.9 ?g/kg, QW
     Route: 058
     Dates: start: 20120215, end: 20120222
  3. PEGINTRON [Suspect]
     Dosage: 0.75 ?g/kg, QW
     Route: 058
     Dates: start: 20120229, end: 20120229
  4. PEGINTRON [Suspect]
     Dosage: 0.9 ?g/kg, QW
     Route: 058
     Dates: start: 20120308, end: 20120315
  5. PEGINTRON [Suspect]
     Dosage: 1.5 ?g/kg, QW
     Route: 058
     Dates: start: 20120322, end: 20120719
  6. REBETOL [Suspect]
     Indication: CHRONIC HEPATITIS C
     Dosage: 400 mg, QD
     Route: 048
     Dates: start: 20120229, end: 20120404
  7. REBETOL [Suspect]
     Dosage: 600 mg, QD
     Route: 048
     Dates: start: 20120208, end: 20120228
  8. REBETOL [Suspect]
     Dosage: 600 mg, qd
     Route: 048
     Dates: start: 20120228, end: 20120307
  9. REBETOL [Suspect]
     Dosage: 200 mg, QD
     Route: 048
     Dates: start: 20120405, end: 20120411
  10. REBETOL [Suspect]
     Dosage: 200mg,qd
     Route: 048
     Dates: start: 20120510, end: 20120515
  11. REBETOL [Suspect]
     Dosage: 400 mg.qd
     Route: 048
     Dates: start: 20120516, end: 20120725
  12. REBETOL [Suspect]
     Dosage: 400 mg, qd
     Route: 048
     Dates: start: 20120308, end: 20120404
  13. TELAVIC [Suspect]
     Indication: CHRONIC HEPATITIS C
     Dosage: 2250 mg, QD
     Route: 048
     Dates: start: 20120208, end: 20120214
  14. TELAVIC [Suspect]
     Dosage: 1500 mg, QD
     Route: 048
     Dates: start: 20120215, end: 20120418
  15. LORFENAMIN [Concomitant]
     Indication: HEPATITIS C
     Dosage: UNK UNK, tid
     Route: 048
     Dates: start: 20120208
  16. LORFENAMIN [Concomitant]
     Indication: PROPHYLAXIS
     Dosage: UNK
     Route: 048
     Dates: start: 20120208, end: 20120620
  17. REBAMIPIDE [Concomitant]
     Indication: HEPATITIS C
     Dosage: 3 DF, QD
     Route: 048
     Dates: start: 20120208
  18. REBAMIPIDE [Concomitant]
     Indication: PROPHYLAXIS
     Dosage: UNK
     Route: 048
     Dates: start: 20120208, end: 20120620
  19. ZYLORIC [Concomitant]
     Indication: HEPATITIS C
     Dosage: 2 DF, QD
     Route: 048
     Dates: start: 20120215
  20. ZYLORIC [Concomitant]
     Indication: HYPERURICAEMIA
     Dosage: 100 mg, qd
     Route: 048
     Dates: start: 20120215
  21. PRIMPERAN [Concomitant]
     Indication: HEPATITIS C
     Dosage: 1 DF/day, PRN
     Route: 048
     Dates: start: 20120216

REACTIONS (1)
  - Anaemia [Recovering/Resolving]
